FAERS Safety Report 9176809 (Version 1)
Quarter: 2013Q1

REPORT INFORMATION
  Report Type: Spontaneous
  Country: DE (occurrence: DE)
  Receive Date: 20130321
  Receipt Date: 20130321
  Transmission Date: 20140127
  Serious: Yes (Other)
  Sender: FDA-Public Use
  Company Number: DE-PFIZER INC-2013090016

PATIENT
  Age: 30 Year
  Sex: Male
  Weight: 80 kg

DRUGS (2)
  1. LYRICA [Suspect]
     Dosage: 300 MG, UNK
  2. TAVOR [Suspect]
     Dosage: 1 MG

REACTIONS (1)
  - Drug abuse [Unknown]
